FAERS Safety Report 7371742-3 (Version None)
Quarter: 2011Q1

REPORT INFORMATION
  Report Type: 
  Country: None (occurrence: None)
  Receive Date: 20110324
  Receipt Date: 20110316
  Transmission Date: 20110831
  Serious: Yes (Hospitalization)
  Sender: FDA-Public Use
  Company Number: JP-ROCHE-762737

PATIENT
  Sex: Male
  Weight: 65.5 kg

DRUGS (9)
  1. TEMOZOLOMIDE [Suspect]
     Dosage: LAST DOSE PRIOR TO SAE: 24 FEB 2011. MAINTANANCE PHASE.
     Route: 048
     Dates: start: 20110224
  2. MAGNESIUM OXIDE [Concomitant]
     Dates: start: 20101213
  3. LANSOPRAZOLE [Concomitant]
  4. RAMOSETRON HYDROCHLORIDE [Concomitant]
     Dates: start: 20101213
  5. BLINDED BEVACIZUMAB [Suspect]
     Dosage: MAINTANANCE PHASE. LAST DOSE PRIOR TO SAE: 24 FEB 2011
     Route: 042
     Dates: start: 20110224
  6. BLINDED BEVACIZUMAB [Suspect]
     Dosage: CYCLE 1 DAY 15 OF THE MAINTENANCE PHASE WAS ADMINISTERED
     Route: 042
     Dates: start: 20110309
  7. BLINDED BEVACIZUMAB [Suspect]
     Indication: GLIOBLASTOMA
     Dosage: FORM:INFUSION, FREQUENCY: D1Q2W. FORM: INFUSION.
     Route: 042
     Dates: start: 20101213, end: 20110129
  8. TEMOZOLOMIDE [Suspect]
     Indication: GLIOBLASTOMA
     Dosage: FREQUENCY: QD
     Route: 048
     Dates: start: 20101213, end: 20110129
  9. NIFEDIPINE [Concomitant]
     Dates: start: 20101213

REACTIONS (1)
  - CONVULSION [None]
